FAERS Safety Report 7402162-0 (Version None)
Quarter: 2011Q1

REPORT INFORMATION
  Report Type: 
  Country: None (occurrence: None)
  Receive Date: 20110331
  Receipt Date: 20110318
  Transmission Date: 20110831
  Serious: Yes (Other)
  Sender: FDA-Public Use
  Company Number: 2011MA002798

PATIENT
  Age: 73 Year
  Sex: Female

DRUGS (5)
  1. RANITIDINE [Suspect]
  2. SOLIFENACIN (NO PREF. NAME) [Suspect]
  3. AMITRIPTYLINE (AMITRIPTYLINE) [Suspect]
  4. OXYCODONE HCL [Suspect]
  5. GABAPENTIN [Suspect]
     Dosage: 600 MG;TID

REACTIONS (1)
  - TRANSIENT ISCHAEMIC ATTACK [None]
